FAERS Safety Report 6843130-7 (Version None)
Quarter: 2010Q3

REPORT INFORMATION
  Report Type: 
  Country: None (occurrence: None)
  Receive Date: 20100715
  Receipt Date: 20100708
  Transmission Date: 20110219
  Serious: Yes (Hospitalization)
  Sender: FDA-Public Use
  Company Number: US-BIOGENIDEC-2010BI023397

PATIENT
  Age: 53 Year
  Sex: Female

DRUGS (2)
  1. AVONEX [Suspect]
     Indication: MULTIPLE SCLEROSIS
     Route: 030
     Dates: start: 20041105, end: 20090901
  2. AVONEX [Suspect]
     Route: 030
     Dates: start: 20091101

REACTIONS (6)
  - ABASIA [None]
  - APPENDICITIS PERFORATED [None]
  - GAIT DISTURBANCE [None]
  - GENERAL SYMPTOM [None]
  - LOSS OF CONTROL OF LEGS [None]
  - PERITONITIS [None]
